FAERS Safety Report 4798923-7 (Version None)
Quarter: 2005Q4

REPORT INFORMATION
  Report Type: 
  Country: None (occurrence: None)
  Receive Date: 20051014
  Receipt Date: 20050928
  Transmission Date: 20060501
  Serious: Yes (Death)
  Sender: FDA-Public Use
  Company Number: 2005SE05479

PATIENT
  Age: 29669 Day
  Sex: Female

DRUGS (3)
  1. SEROQUEL [Suspect]
     Indication: APHASIA
     Dosage: 25 MG THREE TIMES A DAY
     Route: 048
     Dates: start: 20040626, end: 20041115
  2. LANOXIN [Concomitant]
     Dosage: 0.125 MG DAILY
     Route: 048
  3. LASIX [Concomitant]
     Dosage: 25 MG

REACTIONS (1)
  - CEREBROVASCULAR ACCIDENT [None]
